FAERS Safety Report 17115820 (Version 1)
Quarter: 2019Q4

REPORT INFORMATION
  Report Type: Spontaneous
  Country: US (occurrence: US)
  Receive Date: 20191205
  Receipt Date: 20191205
  Transmission Date: 20200122
  Serious: Yes (Hospitalization)
  Sender: FDA-Public Use
  Company Number: US-MYLANLABS-2019M1120748

PATIENT
  Age: 64 Year
  Sex: Male

DRUGS (7)
  1. NOREPINEPHRINE. [Suspect]
     Active Substance: NOREPINEPHRINE
     Indication: HYPOTENSION
     Dosage: 0.18 MICROGRAM/KILOGRAM, QMINUTE
     Route: 065
  2. METHYLENE BLUE. [Concomitant]
     Active Substance: METHYLENE BLUE
     Indication: PROPHYLAXIS
     Dosage: HIGH-DOSE
     Route: 065
  3. EPINEPHRINE. [Suspect]
     Active Substance: EPINEPHRINE
     Indication: HYPOTENSION
     Dosage: 0.08 MICROGRAM/KILOGRAM, QMINUTE
     Route: 065
  4. VASOPRESSIN. [Suspect]
     Active Substance: VASOPRESSIN
     Indication: HYPOTENSION
     Dosage: 0.04 U/MIN
     Route: 065
  5. ANGIOTENSIN II [Suspect]
     Active Substance: ANGIOTENSIN II
     Indication: HYPOTENSION
     Dosage: UNK
     Route: 065
  6. CYANOKIT [Concomitant]
     Active Substance: HYDROXOCOBALAMIN
     Indication: HYPOTENSION
     Dosage: 5G OF HYDROXOCOBALAMIN INTRAVENOUSLY ON POSTOPERATIVE DAY 12 DAY 28
     Route: 042
  7. ASCORBIC ACID. [Concomitant]
     Active Substance: ASCORBIC ACID
     Indication: PROPHYLAXIS
     Dosage: HIGH-DOSE
     Route: 042

REACTIONS (1)
  - Drug ineffective [Unknown]
